FAERS Safety Report 22653444 (Version 1)
Quarter: 2023Q2

REPORT INFORMATION
  Report Type: Spontaneous
  Country: JP (occurrence: JP)
  Receive Date: 20230629
  Receipt Date: 20230629
  Transmission Date: 20230721
  Serious: Yes (Other)
  Sender: FDA-Public Use
  Company Number: JP-UNITED THERAPEUTICS-UNT-2023-018088

PATIENT
  Age: 24 Month
  Sex: Male

DRUGS (4)
  1. UNITUXIN [Suspect]
     Active Substance: DINUTUXIMAB
     Indication: Neuroblastoma
     Dosage: 17.5 MG/M2, CYCLICAL (CYCLE 4)
     Route: 041
     Dates: end: 20230427
  2. UNITUXIN [Suspect]
     Active Substance: DINUTUXIMAB
     Dosage: UNK, CYCLICAL (CYCLE 1)
     Route: 041
     Dates: start: 202211
  3. UNITUXIN [Suspect]
     Active Substance: DINUTUXIMAB
     Dosage: UNK, CYCLICAL (CYCLE 2)
     Route: 041
  4. UNITUXIN [Suspect]
     Active Substance: DINUTUXIMAB
     Dosage: UNK, CYCLICAL (CYCLE 3)
     Route: 041

REACTIONS (1)
  - Neuroblastoma [Unknown]

NARRATIVE: CASE EVENT DATE: 20230401
